FAERS Safety Report 5983940-1 (Version None)
Quarter: 2008Q4

REPORT INFORMATION
  Report Type: 
  Country: None (occurrence: None)
  Receive Date: 20081208
  Receipt Date: 20081201
  Transmission Date: 20090506
  Serious: Yes (Other)
  Sender: FDA-Public Use
  Company Number: US-JNJFOC-20081200736

PATIENT
  Age: 2 Month
  Sex: Male

DRUGS (1)
  1. INFANTS MYLICON NON-STAINING FORMULA [Suspect]
     Indication: FLATULENCE
     Route: 048

REACTIONS (2)
  - FLATULENCE [None]
  - HAEMATOCHEZIA [None]
